FAERS Safety Report 7136772-5 (Version None)
Quarter: 2010Q4

REPORT INFORMATION
  Report Type: 
  Country: None (occurrence: None)
  Receive Date: 20101118
  Receipt Date: 20101103
  Transmission Date: 20110411
  Serious: Yes (Hospitalization, Other)
  Sender: FDA-Public Use
  Company Number: DSJ-2010-19964

PATIENT
  Age: 62 Year
  Sex: Female

DRUGS (3)
  1. BENICAR HCT [Suspect]
     Indication: HYPERTENSION
     Dosage: 40/12.5 MG (1 IN 1 D), PER ORAL
     Route: 048
     Dates: start: 20100101, end: 20101001
  2. OXCARBAZEPINE (OXCARBAZEPINE) (OXCARBAZEPINE) [Concomitant]
  3. CLOPIDOGREL (CLOPIDOGREL) (CLOPIDOGREL) [Concomitant]

REACTIONS (7)
  - DIZZINESS [None]
  - HYPOCALCAEMIA [None]
  - HYPONATRAEMIA [None]
  - MALAISE [None]
  - PARAESTHESIA [None]
  - SYNCOPE [None]
  - THYROIDECTOMY [None]
